FAERS Safety Report 8403891-2 (Version None)
Quarter: 2012Q2

REPORT INFORMATION
  Report Type: 
  Country: None (occurrence: None)
  Receive Date: 20120601
  Receipt Date: 20110912
  Transmission Date: 20120825
  Serious: No
  Sender: FDA-Public Use
  Company Number: US-NOVEN-11US003177

PATIENT

DRUGS (3)
  1. DAYTRANA [Suspect]
     Dosage: 15 MG, QD
     Route: 062
  2. DAYTRANA [Suspect]
     Indication: ATTENTION DEFICIT/HYPERACTIVITY DISORDER
     Dosage: 20 MG, QD, 9 HOURS
     Route: 062
     Dates: start: 20100101
  3. DAYTRANA [Suspect]
     Dosage: 10 MG, QD
     Route: 062

REACTIONS (3)
  - PRODUCT QUALITY ISSUE [None]
  - DRUG INEFFECTIVE [None]
  - INCORRECT DRUG ADMINISTRATION DURATION [None]
